FAERS Safety Report 7242635-7 (Version None)
Quarter: 2011Q1

REPORT INFORMATION
  Report Type: 
  Country: None (occurrence: None)
  Receive Date: 20110125
  Receipt Date: 20110117
  Transmission Date: 20110831
  Serious: Yes (Hospitalization, Other)
  Sender: FDA-Public Use
  Company Number: US-US-EMD SERONO, INC.-239226K07USA

PATIENT
  Sex: Female
  Weight: 56.75 kg

DRUGS (10)
  1. UNSPECIFIED THYROID MEDICATION [Concomitant]
     Route: 065
  2. UNSPECIFIED ANTI-INFLAMMATORY MEDICATION [Concomitant]
     Route: 065
  3. MORPHINE [Concomitant]
     Route: 065
  4. REBIF [Suspect]
     Indication: MULTIPLE SCLEROSIS
     Route: 058
     Dates: start: 20030701, end: 20110101
  5. STEROIDS [Suspect]
     Route: 065
  6. ARICEPT [Concomitant]
     Route: 065
  7. LEXAPRO [Concomitant]
     Route: 065
  8. PERCOCET [Concomitant]
     Route: 065
  9. KLONOPIN [Concomitant]
     Route: 065
  10. RITALIN LA [Concomitant]
     Route: 065

REACTIONS (7)
  - MULTIPLE SCLEROSIS RELAPSE [None]
  - HAND FRACTURE [None]
  - DEHYDRATION [None]
  - LETHARGY [None]
  - HALLUCINATION [None]
  - BLOOD PRESSURE INCREASED [None]
  - NECK PAIN [None]
